FAERS Safety Report 11726437 (Version 1)
Quarter: 2015Q4

REPORT INFORMATION
  Report Type: Spontaneous
  Country: US (occurrence: US)
  Receive Date: 20151110
  Receipt Date: 20151110
  Transmission Date: 20160304
  Serious: No
  Sender: FDA-Public Use
  Company Number: US-ELI_LILLY_AND_COMPANY-US201111002953

PATIENT
  Age: 81 Year
  Sex: Female

DRUGS (1)
  1. FORTEO [Suspect]
     Active Substance: TERIPARATIDE
     Indication: OSTEOPOROSIS
     Dosage: UNK, QD
     Dates: start: 20111004

REACTIONS (10)
  - Atrial fibrillation [Unknown]
  - Malaise [Unknown]
  - Anxiety [Unknown]
  - Decreased appetite [Unknown]
  - Drug dose omission [Unknown]
  - Food aversion [Unknown]
  - Constipation [Unknown]
  - Nausea [Unknown]
  - Heart rate increased [Recovering/Resolving]
  - Feeding disorder [Unknown]

NARRATIVE: CASE EVENT DATE: 2011
